FAERS Safety Report 14951534 (Version 5)
Quarter: 2018Q4

REPORT INFORMATION
  Report Type: Report from Study
  Country: US (occurrence: US)
  Receive Date: 20180530
  Receipt Date: 20181127
  Transmission Date: 20190204
  Serious: No
  Sender: FDA-Public Use
  Company Number: US-ROCHE-2130755

PATIENT
  Age: 58 Year
  Sex: Male
  Weight: 63.56 kg

DRUGS (7)
  1. OCREVUS [Suspect]
     Active Substance: OCRELIZUMAB
     Indication: NEUROMYELITIS OPTICA SPECTRUM DISORDER
     Route: 042
     Dates: start: 20180223
  2. DEXAMETHASONE. [Concomitant]
     Active Substance: DEXAMETHASONE
     Route: 048
  3. OCREVUS [Suspect]
     Active Substance: OCRELIZUMAB
     Indication: RELAPSING MULTIPLE SCLEROSIS
     Route: 042
     Dates: start: 20180209
  4. MYCOPHENOLATE MOFETIL. [Suspect]
     Active Substance: MYCOPHENOLATE MOFETIL
     Indication: PRODUCT USED FOR UNKNOWN INDICATION
     Dosage: 150MG IN MORNING, 300MG AT 2PM, 150MG AT 7PM AND 300MG
     Route: 048
  5. DOXORUBICIN [Concomitant]
     Active Substance: DOXORUBICIN
     Route: 048
  6. GABAPENTIN. [Concomitant]
     Active Substance: GABAPENTIN
     Route: 048
  7. VINCRISTINE [Concomitant]
     Active Substance: VINCRISTINE
     Route: 048

REACTIONS (11)
  - Abdominal pain upper [Unknown]
  - Chest pain [Unknown]
  - Headache [Unknown]
  - Sinusitis [Not Recovered/Not Resolved]
  - Gait disturbance [Not Recovered/Not Resolved]
  - Temperature intolerance [Unknown]
  - Oropharyngeal pain [Recovered/Resolved]
  - Rash [Unknown]
  - Haemoptysis [Recovered/Resolved]
  - Productive cough [Recovered/Resolved]
  - Viral infection [Recovering/Resolving]

NARRATIVE: CASE EVENT DATE: 20180224
